FAERS Safety Report 18637151 (Version 2)
Quarter: 2021Q1

REPORT INFORMATION
  Report Type: Spontaneous
  Country: US (occurrence: US)
  Receive Date: 20201219
  Receipt Date: 20210106
  Transmission Date: 20210419
  Serious: Yes (Hospitalization, Other)
  Sender: FDA-Public Use
  Company Number: US-AUROBINDO-AUR-APL-2020-061093

PATIENT
  Age: 45 Year
  Sex: Female

DRUGS (1)
  1. CLOZAPINE. [Suspect]
     Active Substance: CLOZAPINE
     Indication: SCHIZOPHRENIA
     Dosage: UNK
     Route: 065

REACTIONS (6)
  - Drug level decreased [Unknown]
  - Tobacco interaction [Unknown]
  - Drug interaction [Unknown]
  - Delusional disorder, persecutory type [Unknown]
  - Condition aggravated [Unknown]
  - Intentional product use issue [Unknown]
